FAERS Safety Report 7325986-7 (Version None)
Quarter: 2011Q1

REPORT INFORMATION
  Report Type: 
  Country: None (occurrence: None)
  Receive Date: 20110302
  Receipt Date: 20110225
  Transmission Date: 20110831
  Serious: No
  Sender: FDA-Public Use
  Company Number: US-PFIZER INC-2011043145

PATIENT

DRUGS (1)
  1. ADVIL LIQUI-GELS [Suspect]
     Dosage: UNK

REACTIONS (2)
  - PRODUCT DOSAGE FORM ISSUE [None]
  - INCORRECT ROUTE OF DRUG ADMINISTRATION [None]
